FAERS Safety Report 9495537 (Version 1)
Quarter: 2013Q3

REPORT INFORMATION
  Report Type: Spontaneous
  Country: US (occurrence: US)
  Receive Date: 20130903
  Receipt Date: 20130903
  Transmission Date: 20140515
  Serious: No
  Sender: FDA-Public Use
  Company Number: US-SANOFI-AVENTIS-2013SA061967

PATIENT
  Age: 42 Year
  Sex: Female

DRUGS (1)
  1. ALLEGRA [Suspect]
     Indication: HYPERSENSITIVITY
     Route: 048
     Dates: start: 20130609

REACTIONS (3)
  - Eye irritation [Not Recovered/Not Resolved]
  - Ocular hyperaemia [Not Recovered/Not Resolved]
  - Drug ineffective [Unknown]
